FAERS Safety Report 4312992-X (Version None)
Quarter: 2004Q1

REPORT INFORMATION
  Report Type: 
  Country: None (occurrence: None)
  Receive Date: 20040303
  Receipt Date: 20040226
  Transmission Date: 20041129
  Serious: Yes (Life-Threatening, Other)
  Sender: FDA-Public Use
  Company Number: TCI2004A00780

PATIENT
  Age: 55 Year
  Sex: Female

DRUGS (13)
  1. ACTOS [Suspect]
     Indication: INSULIN-REQUIRING TYPE II DIABETES MELLITUS
     Dosage: 15 MG (15 MG, 1 PER D) ORAL
     Route: 048
     Dates: start: 20030610, end: 20030920
  2. BASEN (VOGLIBOSE) [Suspect]
     Indication: INSULIN-REQUIRING TYPE II DIABETES MELLITUS
     Dosage: PER ORAL
     Route: 048
  3. GLIMEPIRIDE [Concomitant]
  4. ATORVASTATIN [Concomitant]
  5. TRANEXAMIC ACID [Concomitant]
  6. DASEN (SERRAPEPTASE) [Concomitant]
  7. LOXOPROFEN SODIUM [Concomitant]
  8. CEFDINIR [Concomitant]
  9. EPRAZINONE HYDROCHLORIDE [Concomitant]
  10. AMBROXOL HYDROCHLORIDE [Concomitant]
  11. CLARITHROMYCIN [Concomitant]
  12. THEOPHYLLINE [Concomitant]
  13. CODEINE PHOSPHATE [Concomitant]

REACTIONS (1)
  - ANGINA UNSTABLE [None]
